FAERS Safety Report 5994766-7 (Version None)
Quarter: 2008Q4

REPORT INFORMATION
  Report Type: 
  Country: None (occurrence: None)
  Receive Date: 20081212
  Receipt Date: 20081001
  Transmission Date: 20090506
  Serious: No
  Sender: FDA-Public Use
  Company Number: US-ABBOTT-08P-163-0476102-00

PATIENT
  Sex: Female
  Weight: 48.578 kg

DRUGS (11)
  1. HUMIRA [Suspect]
     Indication: RHEUMATOID ARTHRITIS
     Route: 050
     Dates: start: 20080301
  2. HUMIRA [Suspect]
     Indication: COLITIS
  3. VICODIN [Concomitant]
     Indication: PAIN
     Dosage: 2-3 AS NEEDED
     Route: 048
  4. MORPHINE [Concomitant]
     Indication: PAIN
     Route: 048
  5. CHINESE HERBS [Concomitant]
     Indication: DRUG USE FOR UNKNOWN INDICATION
     Route: 048
  6. EPSOM SALT BATHS [Concomitant]
     Indication: INFLAMMATION
     Route: 061
  7. ZANAFLEX [Concomitant]
     Indication: FEELING OF RELAXATION
     Dosage: 1 TABLET AT BEDTIME
     Route: 048
  8. LORAZEPAM [Concomitant]
     Indication: ANXIETY
     Dosage: 1 MG AT BEDTIME
     Route: 048
  9. QUETIAPINE FUMARATE [Concomitant]
     Indication: AFFECTIVE DISORDER
     Dosage: 25 MG AT BEDTIME
     Route: 048
  10. RIFAXIMIN [Concomitant]
     Indication: INFECTION
     Route: 048
     Dates: start: 20070101
  11. RIFAXIMIN [Concomitant]

REACTIONS (15)
  - ANTINUCLEAR ANTIBODY INCREASED [None]
  - BURNING SENSATION [None]
  - CONDITION AGGRAVATED [None]
  - DIARRHOEA [None]
  - ERYTHEMA [None]
  - INJECTION SITE HAEMATOMA [None]
  - INJECTION SITE PAIN [None]
  - INJECTION SITE REACTION [None]
  - PAIN [None]
  - RASH [None]
  - SKIN BURNING SENSATION [None]
  - SKIN DISORDER [None]
  - SKIN EXFOLIATION [None]
  - SKIN INDURATION [None]
  - UNDERDOSE [None]
